FAERS Safety Report 6607192-4 (Version None)
Quarter: 2010Q1

REPORT INFORMATION
  Report Type: 
  Country: None (occurrence: None)
  Receive Date: 20100227
  Receipt Date: 20100215
  Transmission Date: 20100710
  Serious: Yes (Death)
  Sender: FDA-Public Use
  Company Number: US-JNJFOC-20100209497

PATIENT
  Age: 47 Year
  Sex: Female
  Weight: 56.25 kg

DRUGS (6)
  1. FENTANYL-100 [Suspect]
     Indication: DRUG USE FOR UNKNOWN INDICATION
     Route: 062
  2. DIPHENHYDRAMINE HCL [Concomitant]
     Route: 065
  3. DOXEPIN HCL [Concomitant]
     Route: 065
  4. MEPROBAMATE [Concomitant]
     Route: 065
  5. CARISOPRODOL [Concomitant]
     Route: 065
  6. HYDROCODONE [Concomitant]
     Route: 065

REACTIONS (3)
  - DRUG LEVEL INCREASED [None]
  - EMPHYSEMA [None]
  - HYPERTENSIVE HEART DISEASE [None]
